FAERS Safety Report 8361596-0 (Version None)
Quarter: 2012Q2

REPORT INFORMATION
  Report Type: 
  Country: None (occurrence: None)
  Receive Date: 20120515
  Receipt Date: 20120510
  Transmission Date: 20120825
  Serious: Yes (Hospitalization)
  Sender: FDA-Public Use
  Company Number: US-B.I. PHARMACEUTICALS,INC./RIDGEFIELD-2012-BP-10561BP

PATIENT
  Sex: Male

DRUGS (13)
  1. ASPIRIN [Concomitant]
     Indication: HYPERTENSION
     Dosage: 325 MG
     Route: 048
  2. TERAZOSIN HCL [Concomitant]
  3. CLONAZEPAM [Concomitant]
     Indication: ANXIETY DISORDER
     Route: 048
  4. ZOLOFT [Concomitant]
     Indication: BIPOLAR DISORDER
     Dosage: 200 MG
     Route: 048
  5. EPITOL [Concomitant]
     Indication: BIPOLAR DISORDER
     Dosage: 200 MG
     Route: 048
  6. ABILIFY [Concomitant]
     Indication: BIPOLAR DISORDER
  7. GEMFIBROZIL [Concomitant]
     Route: 048
  8. LAMICTAL [Concomitant]
     Indication: BIPOLAR DISORDER
     Dosage: 50 MG
     Route: 048
  9. LIPITOR [Concomitant]
     Indication: BLOOD CHOLESTEROL INCREASED
     Dosage: 20 MG
     Route: 048
  10. METFORMIN HCL [Concomitant]
     Indication: DIABETES MELLITUS
     Dosage: 1000 MG
     Route: 048
  11. TRAMADOL HYDROCHLORIDE [Concomitant]
     Indication: PAIN
     Route: 048
  12. SPIRIVA [Suspect]
     Indication: EMPHYSEMA
     Dosage: 18 MCG
     Route: 055
     Dates: start: 20110101
  13. LISINOPRIL [Concomitant]
     Indication: HYPERTENSION
     Dosage: 10 MG
     Route: 048

REACTIONS (1)
  - LUNG NEOPLASM MALIGNANT [None]
